FAERS Safety Report 6841404-7 (Version None)
Quarter: 2010Q3

REPORT INFORMATION
  Report Type: 
  Country: None (occurrence: None)
  Receive Date: 20100714
  Receipt Date: 20070703
  Transmission Date: 20110219
  Serious: No
  Sender: FDA-Public Use
  Company Number: US-PFIZER INC-2007056330

PATIENT
  Sex: Female
  Weight: 66.8 kg

DRUGS (7)
  1. CHANTIX [Suspect]
     Indication: SMOKING CESSATION THERAPY
     Dosage: EVERY DAY
     Dates: start: 20070501
  2. PARNATE [Concomitant]
  3. TRAZODONE HYDROCHLORIDE [Concomitant]
  4. XANAX [Concomitant]
  5. ROBAXIN [Concomitant]
  6. VICODIN [Concomitant]
  7. MOTRIN [Concomitant]

REACTIONS (7)
  - ASTHENIA [None]
  - DYSGEUSIA [None]
  - DYSPNOEA [None]
  - FLATULENCE [None]
  - HOT FLUSH [None]
  - HYPERHIDROSIS [None]
  - NAUSEA [None]
